FAERS Safety Report 4524642-8 (Version None)
Quarter: 2004Q4

REPORT INFORMATION
  Report Type: 
  Country: None (occurrence: None)
  Receive Date: 20041117
  Receipt Date: 20030822
  Transmission Date: 20050328
  Serious: Yes (Other)
  Sender: FDA-Public Use
  Company Number: C2003-2217.01

PATIENT
  Age: 36 Year
  Sex: Male

DRUGS (7)
  1. CLOZAPINE [Suspect]
     Indication: AGGRESSION
     Dosage: 50MG Q PM, ORAL
     Route: 048
     Dates: start: 20000220, end: 20030723
  2. CLOZAPINE [Suspect]
     Indication: MENINGITIS
     Dosage: 50MG Q PM, ORAL
     Route: 048
     Dates: start: 20000220, end: 20030723
  3. CLOZAPINE [Suspect]
     Indication: AGGRESSION
     Dosage: 100MG Q AM, ORAL
     Route: 048
     Dates: start: 20000220, end: 20030723
  4. CLOZAPINE [Suspect]
     Indication: MENINGITIS
     Dosage: 100MG Q AM, ORAL
     Route: 048
     Dates: start: 20000220, end: 20030723
  5. CLONAZEPAM [Concomitant]
  6. FLUOXETINE [Concomitant]
  7. CLOMIPRAMINE HCL [Concomitant]

REACTIONS (1)
  - LEUKOPENIA [None]
